FAERS Safety Report 6261313-4 (Version None)
Quarter: 2009Q3

REPORT INFORMATION
  Report Type: 
  Country: None (occurrence: None)
  Receive Date: 20090709
  Receipt Date: 20090629
  Transmission Date: 20100115
  Serious: Yes (Other)
  Sender: FDA-Public Use
  Company Number: GB-ROCHE-640856

PATIENT
  Age: 66 Year
  Sex: Male
  Weight: 111 kg

DRUGS (1)
  1. MIRCERA [Suspect]
     Indication: DRUG USE FOR UNKNOWN INDICATION
     Route: 042

REACTIONS (2)
  - ARTHRALGIA [None]
  - HEADACHE [None]
